FAERS Safety Report 5577870-7 (Version None)
Quarter: 2007Q4

REPORT INFORMATION
  Report Type: 
  Country: None (occurrence: None)
  Receive Date: 20071227
  Receipt Date: 20071217
  Transmission Date: 20080405
  Serious: Yes (Other)
  Sender: FDA-Public Use
  Company Number: 163-C5013-07120944

PATIENT
  Age: 62 Year
  Sex: Female

DRUGS (1)
  1. CC-5013 (LENALIDOMIDE) (CAPSULES) [Suspect]
     Indication: B-CELL LYMPHOMA REFRACTORY
     Dosage: 25 MG, DAILY ON DAYS 1-21, OF 28 DAY CYCLE, ORAL; 20 MG, ORAL; 15 MG, ORAL
     Route: 048
     Dates: start: 20060801

REACTIONS (8)
  - BLOOD LACTATE DEHYDROGENASE INCREASED [None]
  - DRUG TOXICITY [None]
  - DYSPNOEA PAROXYSMAL NOCTURNAL [None]
  - FATIGUE [None]
  - HYPOTHYROIDISM [None]
  - MUCOSAL INFLAMMATION [None]
  - PERIORBITAL OEDEMA [None]
  - THYROIDITIS [None]
